FAERS Safety Report 4807389-X (Version None)
Quarter: 2005Q4

REPORT INFORMATION
  Report Type: 
  Country: None (occurrence: None)
  Receive Date: 20051024
  Receipt Date: 20041028
  Transmission Date: 20060501
  Serious: Yes (Death, Hospitalization)
  Sender: FDA-Public Use
  Company Number: US-MERCK-0410USA04436

PATIENT
  Age: 62 Year
  Sex: Female

DRUGS (2)
  1. VIOXX [Suspect]
     Indication: ARTHRITIS
     Route: 048
     Dates: start: 20001101, end: 20021022
  2. ZOLOFT [Concomitant]
     Route: 065
     Dates: start: 19980101

REACTIONS (16)
  - ADVERSE EVENT [None]
  - ARTERIOSCLEROSIS CORONARY ARTERY [None]
  - ASTHENIA [None]
  - BACK PAIN [None]
  - BLOOD CHOLESTEROL INCREASED [None]
  - BLOOD TRIGLYCERIDES INCREASED [None]
  - CONTUSION [None]
  - DEAFNESS BILATERAL [None]
  - FALL [None]
  - HEADACHE [None]
  - HYPERTENSION [None]
  - HYPOACUSIS [None]
  - INFLUENZA LIKE ILLNESS [None]
  - MYOCARDIAL INFARCTION [None]
  - SARCOIDOSIS [None]
  - UPPER LIMB FRACTURE [None]
